FAERS Safety Report 4620839-7 (Version None)
Quarter: 2005Q1

REPORT INFORMATION
  Report Type: 
  Country: None (occurrence: None)
  Receive Date: 20050325
  Receipt Date: 20050322
  Transmission Date: 20050727
  Serious: Yes (Hospitalization)
  Sender: FDA-Public Use
  Company Number: 2005UW03201

PATIENT
  Age: 81 Year
  Sex: Male
  Weight: 66.7695 kg

DRUGS (1)
  1. ZOLADEX [Suspect]

REACTIONS (2)
  - ABDOMINAL ABSCESS [None]
  - SUBCUTANEOUS ABSCESS [None]
